FAERS Safety Report 6241317-8 (Version None)
Quarter: 2009Q2

REPORT INFORMATION
  Report Type: 
  Country: None (occurrence: None)
  Receive Date: 20090623
  Receipt Date: 20090619
  Transmission Date: 20091009
  Serious: No
  Sender: FDA-Public Use
  Company Number: US-B.I. PHARMACEUTICALS,INC./RIDGEFIELD-2009-BP-07484BP

PATIENT
  Age: 74 Year
  Sex: Male

DRUGS (10)
  1. FLOMAX [Suspect]
     Indication: BENIGN PROSTATIC HYPERPLASIA
     Dosage: 0.4 MG
     Route: 048
     Dates: start: 20090301, end: 20090601
  2. GLIPIZIDE [Concomitant]
     Indication: DIABETES MELLITUS
  3. LISINOPRIL [Concomitant]
     Indication: HYPERTENSION
  4. TRICOR [Concomitant]
     Indication: BLOOD CHOLESTEROL INCREASED
  5. DIOVAN [Concomitant]
     Indication: HYPERTENSION
  6. NYSTATIN [Concomitant]
     Indication: BLOOD CHOLESTEROL INCREASED
  7. COREG [Concomitant]
     Indication: CARDIAC DISORDER
  8. IRON [Concomitant]
  9. VITAMIN D [Concomitant]
  10. JANUVIA [Concomitant]
     Indication: DIABETES MELLITUS

REACTIONS (1)
  - RHINORRHOEA [None]
